FAERS Safety Report 4554682-4 (Version None)
Quarter: 2005Q1

REPORT INFORMATION
  Report Type: 
  Country: None (occurrence: None)
  Receive Date: 20050118
  Receipt Date: 20050106
  Transmission Date: 20050727
  Serious: Yes (Other)
  Sender: FDA-Public Use
  Company Number: US-GLAXOSMITHKLINE-A0539608A

PATIENT
  Age: 50 Year
  Sex: Female
  Weight: 63.2 kg

DRUGS (1)
  1. EQUATE NTS 21MG [Suspect]
     Indication: SMOKING CESSATION THERAPY
     Route: 062
     Dates: start: 20050101, end: 20050104

REACTIONS (5)
  - BLOOD PRESSURE INCREASED [None]
  - HYPERHIDROSIS [None]
  - LOSS OF CONSCIOUSNESS [None]
  - NAUSEA [None]
  - OVERDOSE [None]
